FAERS Safety Report 25886968 (Version 1)
Quarter: 2025Q4

REPORT INFORMATION
  Report Type: Spontaneous
  Country: PK (occurrence: PK)
  Receive Date: 20251006
  Receipt Date: 20251006
  Transmission Date: 20260118
  Serious: Yes (Life-Threatening, Hospitalization)
  Sender: GALPHARM INTERNATIONAL
  Company Number: PK-MLMSERVICE-20250919-PI649113-00031-1

PATIENT
  Age: 9 Year
  Sex: Male

DRUGS (2)
  1. OMEPRAZOLE MAGNESIUM [Suspect]
     Active Substance: OMEPRAZOLE MAGNESIUM
     Indication: Abdominal pain
     Dosage: UNKNOWN, UNKNOWN
     Route: 048
  2. BUTYLSCOPOLAMINE BROMIDE [Suspect]
     Active Substance: BUTYLSCOPOLAMINE BROMIDE
     Indication: Abdominal pain
     Dosage: UNKNOWN, UNKNOWN
     Route: 048

REACTIONS (1)
  - SJS-TEN overlap [Recovered/Resolved]
